FAERS Safety Report 8343545-4 (Version None)
Quarter: 2012Q2

REPORT INFORMATION
  Report Type: 
  Country: None (occurrence: None)
  Receive Date: 20120508
  Receipt Date: 20120502
  Transmission Date: 20120825
  Serious: Yes (Death)
  Sender: FDA-Public Use
  Company Number: US-PFIZER INC-2012075855

PATIENT
  Sex: Male
  Weight: 54.875 kg

DRUGS (3)
  1. ATIVAN [Concomitant]
     Indication: LUNG TRANSPLANT
     Dosage: 500/2.5 MCG/ML, UNK
  2. ALBUTEROL [Concomitant]
     Indication: LUNG TRANSPLANT
     Dosage: 2.5 MG, AS NEEDED
  3. VFEND [Suspect]
     Indication: LUNG TRANSPLANT
     Dosage: 200 MG, 2X/DAY
     Route: 048
     Dates: start: 20110815

REACTIONS (1)
  - SEPSIS [None]
